FAERS Safety Report 7916631-8 (Version None)
Quarter: 2011Q4

REPORT INFORMATION
  Report Type: 
  Country: None (occurrence: None)
  Receive Date: 20111116
  Receipt Date: 20111108
  Transmission Date: 20120403
  Serious: Yes (Other)
  Sender: FDA-Public Use
  Company Number: US-PFIZER INC-2011275528

PATIENT
  Sex: Male

DRUGS (1)
  1. ZMAX [Suspect]
     Dosage: UNK
     Route: 048

REACTIONS (1)
  - DIARRHOEA [None]
